FAERS Safety Report 20257717 (Version 1)
Quarter: 2021Q4

REPORT INFORMATION
  Report Type: Spontaneous
  Country: CA (occurrence: CA)
  Receive Date: 20211230
  Receipt Date: 20211230
  Transmission Date: 20220303
  Serious: Yes (Other)
  Sender: FDA-Public Use
  Company Number: CA-MLMSERVICE-20211214-3268741-1

PATIENT
  Sex: Male

DRUGS (3)
  1. CEFPROZIL [Suspect]
     Active Substance: CEFPROZIL
     Indication: Antibiotic therapy
     Dosage: UNK
     Route: 065
  2. IBUPROFEN [Concomitant]
     Active Substance: IBUPROFEN
     Indication: Pyrexia
     Dosage: UNK
     Route: 065
  3. IBUPROFEN [Concomitant]
     Active Substance: IBUPROFEN
     Dosage: 180 MILLIGRAM (DURING ORAL PROVOCATION CHALLENGE)
     Route: 048

REACTIONS (1)
  - Type I hypersensitivity [Recovered/Resolved]
